FAERS Safety Report 5918499-8 (Version None)
Quarter: 2008Q4

REPORT INFORMATION
  Report Type: 
  Country: None (occurrence: None)
  Receive Date: 20081014
  Receipt Date: 20081014
  Transmission Date: 20090506
  Serious: Yes (Life-Threatening)
  Sender: FDA-Public Use
  Company Number: None

PATIENT
  Age: 38 Year
  Sex: Male
  Weight: 65 kg

DRUGS (1)
  1. CIPROFLOXACIN HCL [Suspect]
     Indication: SINUS DISORDER
     Dosage: 1TABLET 2TIMES PO
     Route: 048
     Dates: start: 20080509, end: 20080514

REACTIONS (11)
  - DIZZINESS [None]
  - GAIT DISTURBANCE [None]
  - HEADACHE [None]
  - HEARING IMPAIRED [None]
  - HEMIPARESIS [None]
  - MYALGIA [None]
  - NIGHTMARE [None]
  - PAIN IN EXTREMITY [None]
  - SKIN EXFOLIATION [None]
  - SWELLING FACE [None]
  - TINNITUS [None]
